FAERS Safety Report 8458621-5 (Version None)
Quarter: 2012Q2

REPORT INFORMATION
  Report Type: 
  Country: None (occurrence: None)
  Receive Date: 20120622
  Receipt Date: 20120611
  Transmission Date: 20120825
  Serious: No
  Sender: FDA-Public Use
  Company Number: US-JNJFOC-20120606474

PATIENT
  Sex: Female
  Weight: 98.88 kg

DRUGS (8)
  1. FISH OIL [Concomitant]
     Dosage: 3600 MG/1200 MG
     Route: 048
  2. PROCARDIA [Concomitant]
     Indication: HYPERTENSION
     Route: 048
  3. SIMVASTATIN [Concomitant]
     Indication: BLOOD CHOLESTEROL INCREASED
     Route: 048
  4. PROTONIX [Concomitant]
     Indication: GASTROOESOPHAGEAL REFLUX DISEASE
     Route: 048
     Dates: start: 20020101
  5. FENTANYL-100 [Suspect]
     Indication: ARTHRITIS
     Route: 062
     Dates: start: 20120501
  6. CITALOPRAM HYDROBROMIDE [Concomitant]
     Indication: DEPRESSION
     Route: 048
  7. GLUCOPHAGE [Concomitant]
     Indication: DIABETES MELLITUS
     Route: 048
     Dates: start: 20060101
  8. LORAZEPAM [Concomitant]
     Indication: ANXIETY
     Route: 048
     Dates: start: 20090101

REACTIONS (2)
  - DRUG DOSE OMISSION [None]
  - PRODUCT QUALITY ISSUE [None]
